FAERS Safety Report 9171070 (Version 2)
Quarter: 2013Q2

REPORT INFORMATION
  Report Type: Spontaneous
  Country: DE (occurrence: DE)
  Receive Date: 20130319
  Receipt Date: 20130411
  Transmission Date: 20140414
  Serious: Yes (Other)
  Sender: FDA-Public Use
  Company Number: PHHY2013DE026437

PATIENT
  Sex: 0

DRUGS (2)
  1. DAFIRO HCT [Suspect]
     Dosage: UNK UKN, UNK
  2. MORPHINE [Concomitant]
     Dosage: UNK UKN, UNK

REACTIONS (1)
  - Oral neoplasm [Unknown]
